FAERS Safety Report 9153876 (Version 1)
Quarter: 2013Q1

REPORT INFORMATION
  Report Type: Spontaneous
  Country: JP (occurrence: JP)
  Receive Date: 20130311
  Receipt Date: 20130311
  Transmission Date: 20140127
  Serious: Yes (Hospitalization, Other)
  Sender: FDA-Public Use
  Company Number: JP-JNJFOC-20130301856

PATIENT
  Age: 61 Year
  Sex: Male

DRUGS (5)
  1. ITRIZOLE [Suspect]
     Indication: PRODUCT USED FOR UNKNOWN INDICATION
     Route: 065
  2. SULFAMETHOXAZOLE TRIMETHOPRIM [Suspect]
     Indication: PRODUCT USED FOR UNKNOWN INDICATION
     Route: 065
  3. ACICLOVIR [Suspect]
     Indication: PRODUCT USED FOR UNKNOWN INDICATION
     Route: 065
  4. VELCADE [Suspect]
     Indication: PLASMA CELL MYELOMA
     Route: 042
     Dates: start: 201207
  5. DEXAMETHASONE [Concomitant]
     Route: 048

REACTIONS (5)
  - Cardiac failure [Not Recovered/Not Resolved]
  - Duodenal ulcer [Unknown]
  - Ileus [Unknown]
  - Plasma cell myeloma [Unknown]
  - Renal impairment [Unknown]
